FAERS Safety Report 6468195-6 (Version None)
Quarter: 2009Q4

REPORT INFORMATION
  Report Type: 
  Country: None (occurrence: None)
  Receive Date: 20091127
  Receipt Date: 20091119
  Transmission Date: 20100525
  Serious: Yes (Hospitalization)
  Sender: FDA-Public Use
  Company Number: 2009SP001522

PATIENT
  Age: 24 Year
  Sex: Female

DRUGS (4)
  1. POLARAMINE [Suspect]
     Indication: PRURITUS
     Dosage: PO
     Route: 048
     Dates: start: 20090104, end: 20090110
  2. BETAMETHASONE [Suspect]
     Indication: PRURITUS
     Dosage: PO
     Route: 048
     Dates: start: 20090104, end: 20090110
  3. ALDIOXA (ALDIOXA) [Suspect]
     Indication: PRURITUS
     Dosage: PO
     Route: 048
     Dates: start: 20090104, end: 20090110
  4. EBASTEL (EBASTINE) [Suspect]
     Indication: PRURITUS
     Dosage: PO
     Route: 048
     Dates: start: 20090104, end: 20090110

REACTIONS (5)
  - DRUG INEFFECTIVE [None]
  - JAUNDICE [None]
  - LIVER DISORDER [None]
  - NASOPHARYNGITIS [None]
  - PYREXIA [None]
